FAERS Safety Report 19762644 (Version 2)
Quarter: 2021Q3

REPORT INFORMATION
  Report Type: Spontaneous
  Country: US (occurrence: US)
  Receive Date: 20210830
  Receipt Date: 20210902
  Transmission Date: 20211014
  Serious: Yes (Other)
  Sender: FDA-Public Use
  Company Number: US-009507513-2108USA007011

PATIENT
  Age: 47 Year
  Sex: Female

DRUGS (2)
  1. JANUVIA [Suspect]
     Active Substance: SITAGLIPTIN PHOSPHATE
     Route: 048
  2. JANUMET [Suspect]
     Active Substance: METFORMIN HYDROCHLORIDE\SITAGLIPTIN PHOSPHATE
     Dosage: TWICE A DAY
     Route: 048
     Dates: start: 2018

REACTIONS (12)
  - Back disorder [Unknown]
  - Autoscopy [Unknown]
  - Gastrointestinal motility disorder [Unknown]
  - Headache [Unknown]
  - Asthenia [Unknown]
  - Gastrointestinal disorder [Unknown]
  - Anxiety [Unknown]
  - Pancreatitis [Unknown]
  - Sleep disorder due to general medical condition, insomnia type [Unknown]
  - Stress [Unknown]
  - Frustration tolerance decreased [Unknown]
  - Back pain [Unknown]
